FAERS Safety Report 5902878-9 (Version None)
Quarter: 2008Q3

REPORT INFORMATION
  Report Type: 
  Country: None (occurrence: None)
  Receive Date: 20080930
  Receipt Date: 20080930
  Transmission Date: 20090109
  Serious: Yes (Death)
  Sender: FDA-Public Use
  Company Number: None

PATIENT
  Age: 74 Year
  Sex: Male
  Weight: 81.6475 kg

DRUGS (1)
  1. HEPARIN LOCK-FLUSH [Suspect]
     Indication: ANTIBIOTIC THERAPY
     Dosage: 20 ML BID IV BOLUS
     Route: 040
     Dates: start: 20070801, end: 20071031

REACTIONS (2)
  - LUNG DISORDER [None]
  - PHARMACEUTICAL PRODUCT COMPLAINT [None]
